FAERS Safety Report 8555515-1 (Version None)
Quarter: 2012Q3

REPORT INFORMATION
  Report Type: 
  Country: None (occurrence: None)
  Receive Date: 20120731
  Receipt Date: 20111212
  Transmission Date: 20120928
  Serious: No
  Sender: FDA-Public Use
  Company Number: US-ASTRAZENECA-2011SE22427

PATIENT
  Age: 19 Year
  Sex: Male

DRUGS (4)
  1. DEPAKOTE [Suspect]
     Dosage: TWICE DAILY
     Route: 065
  2. SEROQUEL XR [Suspect]
     Indication: BIPOLAR DISORDER
     Route: 048
  3. SEROQUEL XR [Suspect]
     Route: 048
  4. SEROQUEL XR [Suspect]
     Route: 048

REACTIONS (8)
  - BIPOLAR DISORDER [None]
  - ABNORMAL BEHAVIOUR [None]
  - ADVERSE EVENT [None]
  - DRUG DOSE OMISSION [None]
  - INSOMNIA [None]
  - ATTENTION DEFICIT/HYPERACTIVITY DISORDER [None]
  - MALAISE [None]
  - DISCOMFORT [None]
